FAERS Safety Report 6823918-9 (Version None)
Quarter: 2010Q3

REPORT INFORMATION
  Report Type: 
  Country: None (occurrence: None)
  Receive Date: 20100708
  Receipt Date: 20070120
  Transmission Date: 20110219
  Serious: No
  Sender: FDA-Public Use
  Company Number: US-PFIZER INC-2006109785

PATIENT
  Sex: Female
  Weight: 45.36 kg

DRUGS (9)
  1. CHANTIX [Suspect]
     Indication: EX-TOBACCO USER
     Route: 048
     Dates: start: 20060902
  2. CHANTIX [Suspect]
     Indication: TOBACCO USER
  3. TRAZODONE [Suspect]
     Indication: SLEEP DISORDER
  4. PAXIL [Concomitant]
  5. ALPRAZOLAM [Concomitant]
  6. VESICARE [Concomitant]
  7. FOLIC ACID [Concomitant]
  8. METHOTREXATE [Concomitant]
  9. ZANAFLEX [Concomitant]

REACTIONS (3)
  - INSOMNIA [None]
  - NAUSEA [None]
  - RETCHING [None]
